FAERS Safety Report 25186596 (Version 1)
Quarter: 2025Q2

REPORT INFORMATION
  Report Type: Spontaneous
  Country: US (occurrence: US)
  Receive Date: 20250411
  Receipt Date: 20250411
  Transmission Date: 20250716
  Serious: Yes (Life-Threatening, Hospitalization, Other)
  Sender: TWI PHARMACEUTICALS
  Company Number: US-TWI PHARMACEUTICAL, INC-20250300734

PATIENT
  Age: 27 Year
  Sex: Female

DRUGS (1)
  1. BUPROPION HYDROCHLORIDE XL [Suspect]
     Active Substance: BUPROPION HYDROCHLORIDE
     Indication: Product used for unknown indication
     Route: 065

REACTIONS (4)
  - Cardiogenic shock [Recovered/Resolved]
  - Pulmonary oedema [Recovered/Resolved]
  - Overdose [Unknown]
  - Toxicity to various agents [Recovered/Resolved]
